FAERS Safety Report 15265685 (Version 2)
Quarter: 2018Q3

REPORT INFORMATION
  Report Type: Report from Study
  Country: RO (occurrence: RO)
  Receive Date: 20180810
  Receipt Date: 20180817
  Transmission Date: 20181010
  Serious: Yes (Life-Threatening, Hospitalization, Other)
  Sender: FDA-Public Use
  Company Number: RO-GILEAD-2018-0354113

PATIENT
  Age: 60 Year
  Sex: Male

DRUGS (8)
  1. LEDIPASVIR/SOFOSBUVIR [Suspect]
     Active Substance: LEDIPASVIR\SOFOSBUVIR
     Indication: HEPATITIS C
     Dosage: 1 DF, QD
     Route: 048
     Dates: start: 20180509
  2. INSULIN [Concomitant]
     Active Substance: INSULIN NOS
  3. RIBAVIRIN. [Suspect]
     Active Substance: RIBAVIRIN
     Indication: PRODUCT USED FOR UNKNOWN INDICATION
     Dosage: UNK
     Route: 048
  4. RIBAVIRIN. [Suspect]
     Active Substance: RIBAVIRIN
     Dosage: UNK
     Route: 048
  5. URSOFALK [Concomitant]
     Active Substance: URSODIOL
  6. LEDIPASVIR/SOFOSBUVIR [Suspect]
     Active Substance: LEDIPASVIR\SOFOSBUVIR
     Indication: HEPATIC CIRRHOSIS
  7. SILIMARINA [Concomitant]
  8. ESSENTIALE                         /00022201/ [Concomitant]

REACTIONS (6)
  - Cardio-respiratory arrest [Not Recovered/Not Resolved]
  - Dysphagia [Unknown]
  - Tracheostomy [Not Recovered/Not Resolved]
  - Weight decreased [Unknown]
  - Endotracheal intubation [Unknown]
  - Malaise [Not Recovered/Not Resolved]

NARRATIVE: CASE EVENT DATE: 201807
